FAERS Safety Report 7468434-9 (Version None)
Quarter: 2011Q2

REPORT INFORMATION
  Report Type: 
  Country: None (occurrence: None)
  Receive Date: 20110509
  Receipt Date: 20110509
  Transmission Date: 20111010
  Serious: Yes (Hospitalization, Other)
  Sender: FDA-Public Use
  Company Number: BE-ABBOTT-11P-013-0710486-00

PATIENT
  Sex: Female
  Weight: 67 kg

DRUGS (11)
  1. ARAVA [Concomitant]
     Indication: PSORIATIC ARTHROPATHY
     Dates: start: 20080401
  2. SIMVASTATIN [Concomitant]
     Dosage: 20 EG
     Dates: start: 20070901
  3. ZANTAC [Concomitant]
     Indication: PROPHYLAXIS
     Dates: start: 20061101
  4. ACTONEL [Concomitant]
     Indication: OSTEOPOROSIS
     Dates: start: 20040601
  5. GAMBARAN [Concomitant]
     Indication: PSORIATIC ARTHROPATHY
     Dates: start: 20080901, end: 20100511
  6. STAURODORM [Concomitant]
     Indication: INSOMNIA
     Dates: start: 20041201
  7. MEDROL [Concomitant]
     Indication: PSORIATIC ARTHROPATHY
     Dates: start: 20091204
  8. HUMIRA [Suspect]
     Indication: PSORIATIC ARTHROPATHY
     Route: 058
     Dates: start: 20090506
  9. ARAVA [Concomitant]
     Dates: start: 20080401
  10. BETAHISTINE EG [Concomitant]
     Indication: MENIERE'S DISEASE
     Dates: start: 20080201
  11. VENLAFAXINE [Concomitant]
     Indication: DEPRESSION
     Dates: start: 20060801

REACTIONS (7)
  - SUBARACHNOID HAEMORRHAGE [None]
  - ANEURYSM [None]
  - ANEURYSM RUPTURED [None]
  - NECK PAIN [None]
  - HEADACHE [None]
  - MEMORY IMPAIRMENT [None]
  - URINARY INCONTINENCE [None]
